FAERS Safety Report 13534898 (Version 3)
Quarter: 2017Q3

REPORT INFORMATION
  Report Type: Report from Study
  Country: GB (occurrence: GB)
  Receive Date: 20170511
  Receipt Date: 20170726
  Transmission Date: 20171127
  Serious: Yes (Other)
  Sender: FDA-Public Use
  Company Number: GB-BRISTOL-MYERS SQUIBB COMPANY-BMS-2017-039958

PATIENT
  Sex: Female

DRUGS (1)
  1. ABATACEPT [Suspect]
     Active Substance: ABATACEPT
     Indication: RHEUMATOID ARTHRITIS
     Dosage: 125 MG, QWK
     Route: 058
     Dates: start: 20150223

REACTIONS (9)
  - Food poisoning [Unknown]
  - Pharyngitis [Unknown]
  - Gastroenteritis [Unknown]
  - Deafness [Unknown]
  - Somnolence [Unknown]
  - Laryngitis [Unknown]
  - Pain [Unknown]
  - Malaise [Unknown]
  - Tonsillitis [Unknown]
